FAERS Safety Report 4598747-X (Version None)
Quarter: 2005Q1

REPORT INFORMATION
  Report Type: 
  Country: None (occurrence: None)
  Receive Date: 20050304
  Receipt Date: 20050223
  Transmission Date: 20050727
  Serious: Yes (Death)
  Sender: FDA-Public Use
  Company Number: 395317

PATIENT
  Age: 69 Year
  Sex: Female

DRUGS (13)
  1. CARVEDILOL [Suspect]
     Indication: CARDIAC FAILURE CHRONIC
     Dosage: 1.25MG VARIABLE DOSE
     Route: 048
     Dates: start: 20040615, end: 20040805
  2. FRANDOL [Concomitant]
     Dates: start: 20040615, end: 20040805
  3. LIVACT [Concomitant]
     Dates: start: 20040615, end: 20040805
  4. PROMAC [Concomitant]
     Dates: start: 20040615, end: 20040805
  5. FLUITRAN [Concomitant]
     Dates: start: 20040615, end: 20040727
  6. ADALAT [Concomitant]
     Dates: start: 20040615, end: 20040805
  7. MUCOSTA [Concomitant]
     Dates: start: 20040615, end: 20040805
  8. SODIUM ALGINATE [Concomitant]
     Dates: start: 20040617, end: 20040805
  9. SENNOSIDE [Concomitant]
     Dates: start: 20040622, end: 20040805
  10. DIART [Concomitant]
     Dates: start: 20040703, end: 20040805
  11. LENDORM [Concomitant]
     Dates: start: 20040703, end: 20040805
  12. TANATRIL [Concomitant]
     Dates: start: 20040629, end: 20040729
  13. SIGMART [Concomitant]
     Dates: start: 20040728, end: 20040805

REACTIONS (2)
  - CARDIAC FAILURE [None]
  - RESPIRATORY FAILURE [None]
